FAERS Safety Report 15607253 (Version 1)
Quarter: 2018Q4

REPORT INFORMATION
  Report Type: Spontaneous
  Country: US (occurrence: US)
  Receive Date: 20181107
  Receipt Date: 20181107
  Transmission Date: 20190205
  Serious: No
  Sender: FDA-Public Use
  Company Number: None

PATIENT
  Age: 70 Year
  Sex: Female
  Weight: 68.04 kg

DRUGS (7)
  1. VITAMIN B12 [Concomitant]
     Active Substance: CYANOCOBALAMIN
  2. CITALOPRAM [Concomitant]
     Active Substance: CITALOPRAM HYDROBROMIDE
  3. KETOROLAC TROM [Concomitant]
  4. PREDNISOLONE ACETATE. [Concomitant]
     Active Substance: PREDNISOLONE ACETATE
  5. VITAMIN D3 [Concomitant]
     Active Substance: CHOLECALCIFEROL
  6. TRIMOX [Suspect]
     Active Substance: AMOXICILLIN
     Indication: INTRAOPERATIVE CARE
     Dosage: ?          QUANTITY:1 DF DOSAGE FORM;OTHER FREQUENCY:4/19/18 4/24/18;OTHER ROUTE:INJECTION?
     Dates: start: 20180419, end: 20180424
  7. FUROSEMIDE. [Concomitant]
     Active Substance: FUROSEMIDE

REACTIONS (2)
  - Device dislocation [None]
  - Blindness [None]
